FAERS Safety Report 6367606-4 (Version None)
Quarter: 2009Q3

REPORT INFORMATION
  Report Type: 
  Country: None (occurrence: None)
  Receive Date: 20090921
  Receipt Date: 20090915
  Transmission Date: 20100115
  Serious: Yes (Death)
  Sender: FDA-Public Use
  Company Number: US-GILEAD-2009-0023592

PATIENT
  Sex: Male

DRUGS (11)
  1. LETAIRIS [Suspect]
     Indication: PULMONARY ARTERIAL HYPERTENSION
     Route: 048
     Dates: start: 20080716
  2. VERAPAMIL [Concomitant]
  3. ZAROXOLYN [Concomitant]
  4. DEMADEX [Concomitant]
  5. ALBUTEROL [Concomitant]
  6. ADVAIR HFA [Concomitant]
  7. SPIRIVA [Concomitant]
  8. ALLOPURINOL [Concomitant]
  9. NEXIUM [Concomitant]
  10. K-DUR [Concomitant]
  11. MAG-OX [Concomitant]

REACTIONS (1)
  - DEATH [None]
